FAERS Safety Report 7364812-7 (Version None)
Quarter: 2011Q1

REPORT INFORMATION
  Report Type: 
  Country: None (occurrence: None)
  Receive Date: 20110321
  Receipt Date: 20110310
  Transmission Date: 20110831
  Serious: Yes (Hospitalization)
  Sender: FDA-Public Use
  Company Number: PHHO2011FR00611

PATIENT
  Sex: Female
  Weight: 88 kg

DRUGS (4)
  1. TRAMADOL HCL [Concomitant]
     Dosage: UNK
     Dates: start: 20090423, end: 20101021
  2. HEXAQUINE [Concomitant]
  3. KARDEGIC [Concomitant]
  4. STI571/CGP57148B [Suspect]
     Indication: CHRONIC MYELOID LEUKAEMIA
     Dosage: 400 MG, BID
     Route: 048
     Dates: start: 20080130

REACTIONS (2)
  - CEREBRAL INFARCTION [None]
  - AMAUROSIS FUGAX [None]
